FAERS Safety Report 24830473 (Version 1)
Quarter: 2025Q1

REPORT INFORMATION
  Report Type: Spontaneous
  Country: US (occurrence: US)
  Receive Date: 20250110
  Receipt Date: 20250110
  Transmission Date: 20250409
  Serious: No
  Sender: PFIZER
  Company Number: US-PFIZER INC-202500004584

PATIENT
  Age: 36 Year
  Sex: Female

DRUGS (10)
  1. PAXLOVID [Suspect]
     Active Substance: NIRMATRELVIR\RITONAVIR
     Indication: Post-acute COVID-19 syndrome
     Dates: start: 202206, end: 202206
  2. PAXLOVID [Suspect]
     Active Substance: NIRMATRELVIR\RITONAVIR
     Route: 048
     Dates: start: 202302, end: 202302
  3. CLOPIDOGREL [Concomitant]
     Active Substance: CLOPIDOGREL BISULFATE
     Dates: end: 202302
  4. MELOXICAM [Concomitant]
     Active Substance: MELOXICAM
     Dates: end: 202302
  5. ESCITALOPRAM [Concomitant]
     Active Substance: ESCITALOPRAM OXALATE
  6. PROPRANOLOL [Concomitant]
     Active Substance: PROPRANOLOL HYDROCHLORIDE
  7. NALTREXONE [Concomitant]
     Active Substance: NALTREXONE
  8. PRAVASTATIN [Concomitant]
     Active Substance: PRAVASTATIN
     Dates: end: 202302
  9. FENOFIBRATE [Concomitant]
     Active Substance: FENOFIBRATE
     Dates: end: 202302
  10. MARAVIROC [Concomitant]
     Active Substance: MARAVIROC
     Dates: end: 202302

REACTIONS (5)
  - Abdominal pain upper [Unknown]
  - Off label use [Unknown]
  - Off label use [Unknown]
  - Product use issue [Unknown]
  - Drug ineffective for unapproved indication [Unknown]

NARRATIVE: CASE EVENT DATE: 20220101
